FAERS Safety Report 5275963-5 (Version None)
Quarter: 2007Q2

REPORT INFORMATION
  Report Type: 
  Country: None (occurrence: None)
  Receive Date: 20070326
  Receipt Date: 20070314
  Transmission Date: 20071010
  Serious: Yes (Other)
  Sender: FDA-Public Use
  Company Number: DE-ROCHE-471770

PATIENT
  Age: 38 Year
  Sex: Male

DRUGS (2)
  1. GANCICLOVIR SODIUM [Suspect]
     Indication: GLIOMA
     Route: 042
     Dates: start: 20061029
  2. CEREPRO [Suspect]
     Indication: GLIOMA
     Dosage: SINGLE DOSE FORM REPORTED AS INJ
     Route: 042
     Dates: start: 20061024, end: 20061024

REACTIONS (1)
  - BRAIN OEDEMA [None]
